FAERS Safety Report 18608600 (Version 1)
Quarter: 2020Q4

REPORT INFORMATION
  Report Type: Spontaneous
  Country: US (occurrence: US)
  Receive Date: 20201213
  Receipt Date: 20201213
  Transmission Date: 20210114
  Serious: Yes (Other)
  Sender: FDA-Public Use
  Company Number: US-JNJFOC-20201204650

PATIENT
  Age: 61 Year
  Sex: Male

DRUGS (38)
  1. CHOLECALCIFEROL [Concomitant]
     Active Substance: CHOLECALCIFEROL
     Route: 048
  2. K DUR [Concomitant]
     Route: 048
  3. LIPITOR [Concomitant]
     Active Substance: ATORVASTATIN CALCIUM
     Route: 048
  4. ZETIA [Concomitant]
     Active Substance: EZETIMIBE
     Route: 048
  5. BACTRIM DS [Concomitant]
     Active Substance: SULFAMETHOXAZOLE\TRIMETHOPRIM
     Dosage: 800 MG/160 MG
     Route: 048
  6. CALCIUM [Concomitant]
     Active Substance: CALCIUM
  7. EZETIMIBE. [Concomitant]
     Active Substance: EZETIMIBE
  8. METOPROLOL. [Concomitant]
     Active Substance: METOPROLOL
     Route: 048
  9. NORVASC [Concomitant]
     Active Substance: AMLODIPINE BESYLATE
     Route: 048
  10. POTASSIUM [Concomitant]
     Active Substance: POTASSIUM
  11. ZOFRAN [Concomitant]
     Active Substance: ONDANSETRON HYDROCHLORIDE
     Route: 042
  12. PANTOP [Concomitant]
     Active Substance: PANTOPRAZOLE SODIUM
     Route: 048
  13. DARZALEX FASPRO [Suspect]
     Active Substance: DARATUMUMAB\HYALURONIDASE-FIHJ
     Indication: PLASMA CELL MYELOMA
     Dosage: DAY 1, 8 ON A 28 CYCLE
     Route: 058
     Dates: start: 20200813
  14. POMALYST [Suspect]
     Active Substance: POMALIDOMIDE
     Route: 048
     Dates: start: 20201030
  15. DECADRON [Concomitant]
     Active Substance: DEXAMETHASONE
     Dosage: 5 TABS ON DARA. ADMINISTRATION DAY. AND WEEKLY ON NON INFUSION DAY
  16. DOXYCYCLINE. [Concomitant]
     Active Substance: DOXYCYCLINE
     Route: 048
  17. MELPHALAN. [Concomitant]
     Active Substance: MELPHALAN
  18. CIPRO [Concomitant]
     Active Substance: CIPROFLOXACIN HYDROCHLORIDE
     Route: 048
  19. ACYCLOVIR. [Concomitant]
     Active Substance: ACYCLOVIR
     Route: 048
  20. CALCIUM CARBONATE. [Concomitant]
     Active Substance: CALCIUM CARBONATE
     Route: 048
  21. COQ [Concomitant]
  22. MELATONIN [Concomitant]
     Active Substance: MELATONIN
     Route: 048
  23. PEPCID [Concomitant]
     Active Substance: FAMOTIDINE
     Route: 048
  24. SODIUM [Concomitant]
     Active Substance: SODIUM
  25. ZOMETA [Concomitant]
     Active Substance: ZOLEDRONIC ACID
     Route: 042
     Dates: start: 20190102
  26. OLMESARTAN MEDOXOMIL AND HYDROCHLOROTHIAZIDE [Concomitant]
     Active Substance: HYDROCHLOROTHIAZIDE\OLMESARTAN MEDOXOMIL
     Dosage: 40, 25 MG
     Route: 048
  27. EMEND [Concomitant]
     Active Substance: APREPITANT
     Route: 042
  28. POMALYST [Suspect]
     Active Substance: POMALIDOMIDE
     Route: 048
     Dates: start: 20200903
  29. VITAMIN D3 [Concomitant]
     Active Substance: CHOLECALCIFEROL
  30. KYPROLIS [Concomitant]
     Active Substance: CARFILZOMIB
     Route: 042
  31. MULTIVITAMIN [Concomitant]
     Active Substance: VITAMINS
     Route: 048
  32. PROSCAR [Concomitant]
     Active Substance: FINASTERIDE
     Route: 048
  33. POMALYST [Suspect]
     Active Substance: POMALIDOMIDE
     Indication: PLASMA CELL MYELOMA
     Route: 048
     Dates: start: 20200723
  34. NEUPOGEN [Concomitant]
     Active Substance: FILGRASTIM
     Route: 042
  35. KCL [Concomitant]
     Active Substance: POTASSIUM CHLORIDE
  36. ASPIR 81 [Concomitant]
     Active Substance: ASPIRIN
     Route: 048
  37. CALCIUM GLUCONATE. [Concomitant]
     Active Substance: CALCIUM GLUCONATE
  38. CIALIS [Concomitant]
     Active Substance: TADALAFIL
     Route: 048

REACTIONS (3)
  - White blood cell count decreased [Recovering/Resolving]
  - Otitis externa [Unknown]
  - Neutropenia [Recovered/Resolved]

NARRATIVE: CASE EVENT DATE: 2020
